FAERS Safety Report 10579963 (Version 1)
Quarter: 2014Q4

REPORT INFORMATION
  Report Type: Spontaneous
  Country: ZA (occurrence: ZA)
  Receive Date: 20141112
  Receipt Date: 20141112
  Transmission Date: 20150529
  Serious: Yes (Death)
  Sender: FDA-Public Use
  Company Number: ZA-PFIZER INC-2014310525

PATIENT
  Age: 58 Year
  Sex: Male

DRUGS (9)
  1. PURICOS [Concomitant]
     Active Substance: ALLOPURINOL
     Indication: GOUT
     Dosage: 300 MG, UNK
     Route: 048
  2. LISINOPRIL HEXAL [Concomitant]
     Indication: HYPERTENSION
     Dosage: 20 MG, UNK
     Route: 048
  3. AMLOC [Concomitant]
     Active Substance: AMLODIPINE BESYLATE
     Indication: HYPERTENSION
     Dosage: 10 MG, UNK
     Route: 048
  4. DESODENE [Concomitant]
     Indication: HYPERSENSITIVITY
     Route: 048
  5. PLENISH-K [Concomitant]
     Indication: HYPOKALAEMIC SYNDROME
     Dosage: 600 MG, UNK
     Route: 048
  6. GLUCOPHAGE [Concomitant]
     Active Substance: METFORMIN HYDROCHLORIDE
     Indication: TYPE 1 DIABETES MELLITUS
     Dosage: 850 MG, UNK
     Route: 048
  7. COLCHICINE. [Concomitant]
     Active Substance: COLCHICINE
     Indication: GOUT
     Dosage: 0.5 MG, UNK
     Route: 048
  8. CARDURA XL [Suspect]
     Active Substance: DOXAZOSIN MESYLATE
     Dosage: 8 MG, 4X/DAY
     Route: 048
  9. PURESIS [Concomitant]
     Active Substance: FUROSEMIDE
     Indication: HYPERTENSION
     Dosage: 40 MG, UNK
     Route: 048

REACTIONS (1)
  - Neoplasm malignant [Fatal]

NARRATIVE: CASE EVENT DATE: 20141029
